FAERS Safety Report 24429969 (Version 1)
Quarter: 2024Q4

REPORT INFORMATION
  Report Type: Report from Study
  Country: ZA (occurrence: ZA)
  Receive Date: 20241012
  Receipt Date: 20241012
  Transmission Date: 20250115
  Serious: Yes (Hospitalization)
  Sender: ALEXION PHARMACEUTICALS
  Company Number: ZA-AstraZeneca-CH-00714922A

PATIENT
  Age: 57 Year

DRUGS (40)
  1. DAPAGLIFLOZIN [Suspect]
     Active Substance: DAPAGLIFLOZIN
     Indication: Diabetes mellitus
     Dosage: 10 MILLIGRAM
  2. DAPAGLIFLOZIN [Suspect]
     Active Substance: DAPAGLIFLOZIN
     Dosage: 10 MILLIGRAM
  3. DAPAGLIFLOZIN [Suspect]
     Active Substance: DAPAGLIFLOZIN
     Dosage: 10 MILLIGRAM
  4. DAPAGLIFLOZIN [Suspect]
     Active Substance: DAPAGLIFLOZIN
     Dosage: 10 MILLIGRAM
  5. SPIRACTIN [Concomitant]
     Indication: Hypertension
     Dosage: 25 MILLIGRAM
  6. SPIRACTIN [Concomitant]
     Dosage: 25 MILLIGRAM
  7. SPIRACTIN [Concomitant]
     Dosage: 25 MILLIGRAM
  8. SPIRACTIN [Concomitant]
     Dosage: 25 MILLIGRAM
  9. POTASSIUM CHLORIDE [Concomitant]
     Active Substance: POTASSIUM CHLORIDE
     Indication: Hypokalaemia
     Dosage: 600 MILLIGRAM
  10. POTASSIUM CHLORIDE [Concomitant]
     Active Substance: POTASSIUM CHLORIDE
     Dosage: 600 MILLIGRAM
  11. POTASSIUM CHLORIDE [Concomitant]
     Active Substance: POTASSIUM CHLORIDE
     Dosage: 600 MILLIGRAM
  12. POTASSIUM CHLORIDE [Concomitant]
     Active Substance: POTASSIUM CHLORIDE
     Dosage: 600 MILLIGRAM
  13. VALDUO [Concomitant]
     Indication: Hypertension
     Dosage: 160 MILLIGRAM
  14. VALDUO [Concomitant]
     Dosage: 160 MILLIGRAM
  15. VALDUO [Concomitant]
     Dosage: 160 MILLIGRAM
  16. VALDUO [Concomitant]
     Dosage: 160 MILLIGRAM
  17. CARVEDILOL [Concomitant]
     Active Substance: CARVEDILOL
     Indication: Hypertension
     Dosage: 25 MILLIGRAM
  18. CARVEDILOL [Concomitant]
     Active Substance: CARVEDILOL
     Dosage: 25 MILLIGRAM
  19. CARVEDILOL [Concomitant]
     Active Substance: CARVEDILOL
     Dosage: 25 MILLIGRAM
  20. CARVEDILOL [Concomitant]
     Active Substance: CARVEDILOL
     Dosage: 25 MILLIGRAM
  21. LIPOGEN [Concomitant]
     Indication: Blood cholesterol
     Dosage: 40 MILLIGRAM
  22. LIPOGEN [Concomitant]
     Dosage: 40 MILLIGRAM
  23. LIPOGEN [Concomitant]
     Dosage: 40 MILLIGRAM
  24. LIPOGEN [Concomitant]
     Dosage: 40 MILLIGRAM
  25. DAMICAVA [Concomitant]
     Indication: Antiviral treatment
     Dosage: UNK
  26. DAMICAVA [Concomitant]
     Dosage: UNK
  27. DAMICAVA [Concomitant]
     Dosage: UNK
  28. DAMICAVA [Concomitant]
     Dosage: UNK
  29. PANTOCID [Concomitant]
     Indication: Ulcer
     Dosage: 40 MILLIGRAM
  30. PANTOCID [Concomitant]
     Dosage: 40 MILLIGRAM
  31. PANTOCID [Concomitant]
     Dosage: 40 MILLIGRAM
  32. PANTOCID [Concomitant]
     Dosage: 40 MILLIGRAM
  33. DIETARY SUPPLEMENT\HERBALS [Concomitant]
     Active Substance: DIETARY SUPPLEMENT\HERBALS
     Dosage: UNK
  34. DIETARY SUPPLEMENT\HERBALS [Concomitant]
     Active Substance: DIETARY SUPPLEMENT\HERBALS
     Dosage: UNK
  35. DIETARY SUPPLEMENT\HERBALS [Concomitant]
     Active Substance: DIETARY SUPPLEMENT\HERBALS
     Dosage: UNK
  36. DIETARY SUPPLEMENT\HERBALS [Concomitant]
     Active Substance: DIETARY SUPPLEMENT\HERBALS
     Dosage: UNK
  37. BETAPHLEM [Concomitant]
     Dosage: 250 MILLIGRAM
  38. BETAPHLEM [Concomitant]
     Dosage: 250 MILLIGRAM
  39. BETAPHLEM [Concomitant]
     Dosage: 250 MILLIGRAM
  40. BETAPHLEM [Concomitant]
     Dosage: 250 MILLIGRAM

REACTIONS (1)
  - Hypertonia [Unknown]
